FAERS Safety Report 5733766-9 (Version None)
Quarter: 2008Q2

REPORT INFORMATION
  Report Type: 
  Country: None (occurrence: None)
  Receive Date: 20080509
  Receipt Date: 20080502
  Transmission Date: 20081010
  Serious: Yes (Life-Threatening, Hospitalization)
  Sender: FDA-Public Use
  Company Number: AU-PFIZER INC-2008024722

PATIENT
  Sex: Female
  Weight: 72 kg

DRUGS (5)
  1. ZELDOX (CAPSULES) [Suspect]
     Indication: PSYCHOTIC DISORDER
     Route: 048
     Dates: start: 20080115, end: 20080115
  2. PROZAC [Concomitant]
  3. ANTIINFLAMMATORY/ANTIRHEUMATIC PRODUCTS [Concomitant]
  4. LUVOX [Concomitant]
     Indication: DEPRESSION
     Route: 048
  5. STILNOX [Concomitant]
     Route: 048
     Dates: start: 20030717

REACTIONS (3)
  - ANAPHYLACTIC REACTION [None]
  - ANGIOEDEMA [None]
  - DYSTONIA [None]
